FAERS Safety Report 18111424 (Version 1)
Quarter: 2020Q3

REPORT INFORMATION
  Report Type: Report from Study
  Country: US (occurrence: US)
  Receive Date: 20200804
  Receipt Date: 20200804
  Transmission Date: 20201103
  Serious: No
  Sender: FDA-Public Use
  Company Number: NVSC2020US216994

PATIENT
  Age: 7 Month
  Sex: Female

DRUGS (1)
  1. ZOLGENSMA [Suspect]
     Active Substance: ONASEMNOGENE ABEPARVOVEC-XIOI
     Indication: SPINAL MUSCULAR ATROPHY
     Dosage: 1.1 MG, ONCE/SINGLE
     Route: 042
     Dates: start: 20191213, end: 20191213

REACTIONS (2)
  - Rash erythematous [Unknown]
  - Contusion [Unknown]

NARRATIVE: CASE EVENT DATE: 20200719
